FAERS Safety Report 5270371-5 (Version None)
Quarter: 2007Q1

REPORT INFORMATION
  Report Type: 
  Country: None (occurrence: None)
  Receive Date: 20070320
  Receipt Date: 20070308
  Transmission Date: 20070707
  Serious: Yes (Hospitalization, Other)
  Sender: FDA-Public Use
  Company Number: JP-PFIZER INC-2007014911

PATIENT
  Sex: Male
  Weight: 69.5 kg

DRUGS (11)
  1. GABAPEN [Suspect]
     Indication: PARTIAL SEIZURES
     Route: 048
  2. GABAPEN [Suspect]
     Indication: EPILEPSY
  3. DEPAKENE [Concomitant]
     Route: 048
  4. ALEVIATIN [Concomitant]
     Route: 048
  5. NIVADIL [Concomitant]
     Route: 048
  6. PERSELIN [Concomitant]
     Route: 048
  7. SYMMETREL [Concomitant]
     Route: 048
  8. NICERGOLINE [Concomitant]
     Route: 048
  9. BUP-4 [Concomitant]
     Route: 048
  10. HARNAL [Concomitant]
     Route: 048
  11. AMBROXOL HYDROCHLORIDE [Concomitant]
     Route: 048

REACTIONS (1)
  - MEGACOLON [None]
